FAERS Safety Report 7354430 (Version 3)
Quarter: 2013Q2

REPORT INFORMATION
  Report Type: Spontaneous
  Country: FR (occurrence: None)
  Receive Date: 20100325
  Receipt Date: 20130403
  Transmission Date: 20140414
  Serious: Yes (Hospitalization)
  Sender: FDA-Public Use
  Company Number: FRP10000324

PATIENT
  Age: 70 Year
  Sex: Female

DRUGS (8)
  1. ACTONEL [Suspect]
     Dosage: ORAL
     Route: 048
     Dates: end: 20100123
  2. CALCIUM CARBONATE [Suspect]
     Dosage: ORAL
     Route: 048
     Dates: end: 20100124
  3. HYDROCHLOROTHIAZIDE\IRBESARTAN [Suspect]
     Dosage: 300 MG, 1/DAY, ORAL
     Route: 048
     Dates: end: 20100123
  4. LERCANIDIPINE [Suspect]
     Dosage: ORAL
     Route: 048
     Dates: end: 20100124
  5. LYRICA [Suspect]
     Dosage: ORAL
     Route: 048
     Dates: end: 20100124
  6. ARIMIDEX [Suspect]
     Dosage: ORAL
     Route: 048
     Dates: end: 20100123
  7. MOPRAL (OMEPRAZOLE) [Concomitant]
  8. HYDROCORTONE [Concomitant]

REACTIONS (6)
  - BONE MARROW FAILURE [None]
  - CONJUNCTIVAL HAEMORRHAGE [None]
  - PURPURA [None]
  - MOUTH HAEMORRHAGE [None]
  - Pancytopenia [None]
  - Mucosa vesicle [None]
